FAERS Safety Report 19599762 (Version 1)
Quarter: 2021Q3

REPORT INFORMATION
  Report Type: Spontaneous
  Country: US (occurrence: US)
  Receive Date: 20210723
  Receipt Date: 20210723
  Transmission Date: 20211014
  Serious: No
  Sender: FDA-Public Use
  Company Number: None

PATIENT
  Age: 67 Year
  Sex: Male
  Weight: 80.55 kg

DRUGS (22)
  1. OMEPRAZOLE 40MG [Concomitant]
     Active Substance: OMEPRAZOLE
  2. FAMOTIDINE 20MG [Concomitant]
     Active Substance: FAMOTIDINE
  3. TURMERIC [Concomitant]
     Active Substance: HERBALS\TURMERIC
  4. ZOFRAN [Concomitant]
     Active Substance: ONDANSETRON HYDROCHLORIDE
  5. BACTRIM 400?80MG [Concomitant]
  6. ATORVASTATIN 20MG [Concomitant]
     Active Substance: ATORVASTATIN
  7. AMLODIPINE [Concomitant]
     Active Substance: AMLODIPINE BESYLATE
  8. TIZANIDINE 2MG [Concomitant]
     Active Substance: TIZANIDINE
  9. VITAMIN D 50MCG [Concomitant]
  10. ACETAMINOPHEN 325MG [Concomitant]
  11. HUMALOG [Concomitant]
     Active Substance: INSULIN LISPRO
  12. ACYCLOVIR 400MG [Concomitant]
     Active Substance: ACYCLOVIR
  13. METFORMIN 500MG [Concomitant]
     Active Substance: METFORMIN HYDROCHLORIDE
  14. LEVETIRACETAM 750MG [Concomitant]
     Active Substance: LEVETIRACETAM
  15. LANTUS [Concomitant]
     Active Substance: INSULIN GLARGINE
  16. ASPIRIN 81MG [Concomitant]
     Active Substance: ASPIRIN
  17. DIPHENOXYLATE?ATROPINE 2.5?0.025MG [Concomitant]
  18. LOSARTAN 25MG [Concomitant]
     Active Substance: LOSARTAN
  19. FLORAJEN ACIDOPHILLUS [Concomitant]
  20. TEMOZOLOMIDE. [Suspect]
     Active Substance: TEMOZOLOMIDE
     Indication: BRAIN NEOPLASM MALIGNANT
     Dosage: ?          OTHER FREQUENCY:QD X 5/38 DAYS;?
     Route: 048
     Dates: start: 20200501
  21. GABAPENTIN 100MG [Concomitant]
     Active Substance: GABAPENTIN
  22. DEXAMETHASONE 2MG [Concomitant]

REACTIONS (2)
  - Abdominal pain upper [None]
  - Gastrooesophageal reflux disease [None]

NARRATIVE: CASE EVENT DATE: 20210723
